FAERS Safety Report 6191173-1 (Version None)
Quarter: 2009Q2

REPORT INFORMATION
  Report Type: 
  Country: None (occurrence: None)
  Receive Date: 20090513
  Receipt Date: 20090513
  Transmission Date: 20091009
  Serious: Yes (Hospitalization)
  Sender: FDA-Public Use
  Company Number: None

PATIENT
  Age: 58 Year
  Sex: Male

DRUGS (1)
  1. TRIMETHOPRIM-SULFAMETHOXAZOLE [Suspect]
     Indication: STAPHYLOCOCCAL INFECTION
     Dosage: 1 TAB TID PO
     Route: 048
     Dates: start: 20090415, end: 20090422

REACTIONS (4)
  - BLOOD CREATININE INCREASED [None]
  - BLOOD UREA INCREASED [None]
  - HYPERKALAEMIA [None]
  - RENAL INJURY [None]
